FAERS Safety Report 24632111 (Version 3)
Quarter: 2025Q1

REPORT INFORMATION
  Report Type: Report from Study
  Country: CN (occurrence: CN)
  Receive Date: 20241118
  Receipt Date: 20250328
  Transmission Date: 20250408
  Serious: Yes (Hospitalization)
  Sender: AMGEN
  Company Number: CN-AMGEN-CHNNI2024224961

PATIENT
  Age: 59 Year
  Sex: Female
  Weight: 50 kg

DRUGS (18)
  1. DENOSUMAB [Suspect]
     Active Substance: DENOSUMAB
     Indication: Osteoporosis postmenopausal
     Route: 058
     Dates: start: 20231128
  2. LEVOTHYROXINE SODIUM [Concomitant]
     Active Substance: LEVOTHYROXINE SODIUM
     Route: 048
     Dates: start: 2012
  3. Bromfenac sodium hydrate [Concomitant]
     Route: 047
     Dates: start: 20230905
  4. SODIUM HYALURONATE [Concomitant]
     Active Substance: HYALURONATE SODIUM
     Route: 047
     Dates: start: 20231014
  5. Fu ming [Concomitant]
     Route: 048
     Dates: start: 20231016
  6. CALCITRIOL [Concomitant]
     Active Substance: CALCITRIOL
     Route: 048
     Dates: start: 20231128
  7. Calcium carbonate and vitamin d3 tablets (i) [Concomitant]
     Route: 048
     Dates: start: 20231128
  8. LINACLOTIDE [Concomitant]
     Active Substance: LINACLOTIDE
     Route: 048
     Dates: start: 20240904
  9. Polyethylene Glycol Electrolytes [Concomitant]
     Route: 048
     Dates: start: 20240904
  10. PROTEASE [Concomitant]
     Active Substance: PROTEASE
     Route: 048
     Dates: start: 20240904
  11. SIMETHICONE (DIMETHICONE) [Concomitant]
     Active Substance: DIMETHICONE
     Route: 048
     Dates: start: 20240904
  12. LACTATED RINGERS SOLUTION [Concomitant]
     Active Substance: CALCIUM CHLORIDE\POTASSIUM CHLORIDE\SODIUM CHLORIDE\SODIUM LACTATE
     Route: 042
     Dates: start: 20240905
  13. LEVOFLOXACIN [Concomitant]
     Active Substance: LEVOFLOXACIN
     Route: 050
     Dates: start: 20240626
  14. PRANOPROFEN [Concomitant]
     Active Substance: PRANOPROFEN
     Route: 050
     Dates: start: 20240626
  15. PANTOPRAZOLE SODIUM [Concomitant]
     Active Substance: PANTOPRAZOLE SODIUM
     Route: 042
     Dates: start: 20240905
  16. ESTAZOLAM [Concomitant]
     Active Substance: ESTAZOLAM
     Route: 048
     Dates: start: 20240907
  17. ITOPRIDE HYDROCHLORIDE [Concomitant]
     Active Substance: ITOPRIDE HYDROCHLORIDE
     Route: 048
     Dates: start: 20240907
  18. REBAMIPIDE [Concomitant]
     Active Substance: REBAMIPIDE
     Route: 048
     Dates: start: 20240907

REACTIONS (1)
  - Degeneration of uterine leiomyoma [Recovered/Resolved]

NARRATIVE: CASE EVENT DATE: 20240918
